FAERS Safety Report 13242003 (Version 1)
Quarter: 2017Q1

REPORT INFORMATION
  Report Type: Spontaneous
  Country: US (occurrence: US)
  Receive Date: 20170217
  Receipt Date: 20170217
  Transmission Date: 20170428
  Serious: Yes (Hospitalization)
  Sender: FDA-Public Use
  Company Number: US-ASTRAZENECA-2017SE15744

PATIENT
  Age: 72 Year
  Sex: Male
  Weight: 120.2 kg

DRUGS (5)
  1. BLOOD PRESSURE MED [Concomitant]
     Indication: BLOOD PRESSURE ABNORMAL
  2. SUGAR MEDICINE [Concomitant]
  3. INSULIN [Concomitant]
     Active Substance: INSULIN NOS
  4. BRILINTA [Suspect]
     Active Substance: TICAGRELOR
     Indication: MYOCARDIAL INFARCTION
     Route: 048
     Dates: start: 201609
  5. LOW DOSE ASPIRIN [Concomitant]
     Active Substance: ASPIRIN
     Indication: MULTIPLE DRUG THERAPY

REACTIONS (5)
  - Pneumonia [Unknown]
  - Epistaxis [Unknown]
  - Choking [Unknown]
  - Sleep apnoea syndrome [Unknown]
  - Thrombosis [Unknown]

NARRATIVE: CASE EVENT DATE: 2016
